FAERS Safety Report 7915060-0 (Version None)
Quarter: 2011Q4

REPORT INFORMATION
  Report Type: 
  Country: None (occurrence: None)
  Receive Date: 20111115
  Receipt Date: 20111110
  Transmission Date: 20120403
  Serious: Yes (Hospitalization, Other)
  Sender: FDA-Public Use
  Company Number: FR-ABBOTT-11P-056-0873485-00

PATIENT
  Sex: Male

DRUGS (6)
  1. VENTOLIN [Concomitant]
     Indication: PRODUCT USED FOR UNKNOWN INDICATION
  2. BECLOMETHASONE DIPROPIONATE [Concomitant]
     Indication: PRODUCT USED FOR UNKNOWN INDICATION
  3. RASILEZ [Concomitant]
     Indication: PRODUCT USED FOR UNKNOWN INDICATION
     Route: 048
  4. PREVISCAN [Concomitant]
     Indication: PRODUCT USED FOR UNKNOWN INDICATION
     Route: 048
  5. NEXIUM [Concomitant]
     Indication: PRODUCT USED FOR UNKNOWN INDICATION
     Route: 048
  6. HUMIRA [Suspect]
     Indication: ANKYLOSING SPONDYLITIS

REACTIONS (12)
  - HYPERHIDROSIS [None]
  - HAEMOPTYSIS [None]
  - ANXIETY [None]
  - CHEST PAIN [None]
  - LUNG NEOPLASM [None]
  - THROMBOSIS [None]
  - HEPATOMEGALY [None]
  - PALPITATIONS [None]
  - DYSPNOEA [None]
  - WEIGHT DECREASED [None]
  - MALAISE [None]
  - LOSS OF CONSCIOUSNESS [None]
